FAERS Safety Report 6834110-6 (Version None)
Quarter: 2010Q3

REPORT INFORMATION
  Report Type: 
  Country: None (occurrence: None)
  Receive Date: 20100712
  Receipt Date: 20071215
  Transmission Date: 20110219
  Serious: Yes (Other)
  Sender: FDA-Public Use
  Company Number: US-PFIZER INC-2007028603

PATIENT
  Sex: Female
  Weight: 83.9 kg

DRUGS (19)
  1. CHANTIX [Suspect]
     Indication: SMOKING CESSATION THERAPY
     Route: 048
     Dates: start: 20070401, end: 20070601
  2. CHANTIX [Suspect]
     Indication: TOBACCO USER
  3. CHANTIX [Suspect]
     Indication: CHRONIC OBSTRUCTIVE PULMONARY DISEASE
  4. DIURETICS [Concomitant]
  5. HUMULIN N [Concomitant]
  6. HUMULIN R [Concomitant]
  7. PLAVIX [Concomitant]
  8. ACETYLSALICYLIC ACID [Concomitant]
  9. PAXIL [Concomitant]
  10. VYTORIN [Concomitant]
  11. PREVACID [Concomitant]
  12. NEURONTIN [Concomitant]
  13. MOBIC [Concomitant]
  14. FLORINEF [Concomitant]
  15. CILOSTAZOL [Concomitant]
  16. LASIX [Concomitant]
  17. SYNTHROID [Concomitant]
  18. REMERON [Concomitant]
  19. ULTRAM [Concomitant]

REACTIONS (6)
  - BLOOD GLUCOSE INCREASED [None]
  - FATIGUE [None]
  - INSOMNIA [None]
  - NAUSEA [None]
  - TREMOR [None]
  - VOMITING [None]
